FAERS Safety Report 8307603-2 (Version None)
Quarter: 2012Q2

REPORT INFORMATION
  Report Type: 
  Country: None (occurrence: None)
  Receive Date: 20120424
  Receipt Date: 20120419
  Transmission Date: 20120825
  Serious: Yes (Other)
  Sender: FDA-Public Use
  Company Number: DE-PFIZER INC-2012088844

PATIENT
  Age: 42 Year
  Sex: Male

DRUGS (3)
  1. MABCAMPATH [Suspect]
  2. RAPAMUNE [Suspect]
     Dosage: 1 DF, 1X/DAY
  3. ENBREL [Suspect]
     Dosage: 2 DF, 2X/WEEK

REACTIONS (4)
  - INFECTION [None]
  - DIARRHOEA [None]
  - GRAFT VERSUS HOST DISEASE [None]
  - DRUG INEFFECTIVE [None]
